FAERS Safety Report 7362128-6 (Version None)
Quarter: 2011Q1

REPORT INFORMATION
  Report Type: 
  Country: None (occurrence: None)
  Receive Date: 20110318
  Receipt Date: 20110221
  Transmission Date: 20110831
  Serious: No
  Sender: FDA-Public Use
  Company Number: US-B.I. PHARMACEUTICALS,INC./RIDGEFIELD-2011-BP-00355BP

PATIENT
  Age: 80 Year
  Sex: Female
  Weight: 83.46 kg

DRUGS (24)
  1. PRADAXA [Suspect]
     Dosage: 300 MG
     Dates: start: 20101215
  2. TOPROL-XL [Concomitant]
     Dosage: 100 MG
  3. WARFARIN SODIUM [Concomitant]
  4. LANOXIN [Concomitant]
     Dosage: 0.25 MG
  5. POTASSIUM [Concomitant]
     Dosage: 40 MEQ
  6. LUMIGAN [Concomitant]
  7. FISH OIL [Concomitant]
  8. CLARINEX [Concomitant]
     Dosage: 5 MG
  9. ATROPINE [Concomitant]
  10. MUCINEX [Concomitant]
     Dosage: 320 MG
  11. CLONIDINE [Concomitant]
     Dosage: 0.2 MG
  12. FIBERCON [Concomitant]
  13. M.V.I. [Concomitant]
  14. ALPHAGAN [Concomitant]
  15. SURFAK [Concomitant]
  16. VERAPAMIL [Concomitant]
     Dosage: 180 MG
  17. DIOVAN [Concomitant]
     Dosage: 320 MG
  18. POTASSIUM [Concomitant]
     Dosage: 20 MEQ
  19. ADVAIR DISKUS 100/50 [Concomitant]
  20. DEMADEX [Concomitant]
  21. LEVOTHYROXINE SODIUM [Concomitant]
     Dosage: 0.5 MG
  22. NORVASC [Concomitant]
     Dosage: 10 MG
  23. TEKTURNA [Concomitant]
     Dosage: 300 MG
  24. LOTEMAX [Concomitant]

REACTIONS (4)
  - SKIN SWELLING [None]
  - PAIN [None]
  - URTICARIA [None]
  - CELLULITIS [None]
